FAERS Safety Report 24839226 (Version 1)
Quarter: 2025Q1

REPORT INFORMATION
  Report Type: Spontaneous
  Country: US (occurrence: US)
  Receive Date: 20250114
  Receipt Date: 20250114
  Transmission Date: 20250409
  Serious: No
  Sender: IBSA INSTITUT BIOCHIMIQUE
  Company Number: US-IBSA PHARMA INC.-2023IBS000841

PATIENT

DRUGS (1)
  1. TIROSINT-SOL [Suspect]
     Active Substance: LEVOTHYROXINE SODIUM
     Indication: Product used for unknown indication
     Route: 065
     Dates: start: 202311, end: 202311

REACTIONS (13)
  - Joint swelling [Unknown]
  - Lip swelling [Unknown]
  - Pharyngeal swelling [Unknown]
  - Peripheral swelling [Unknown]
  - Swelling face [Unknown]
  - Throat irritation [Unknown]
  - Eye irritation [Unknown]
  - Dyspepsia [Unknown]
  - Tongue discomfort [Unknown]
  - Abdominal pain upper [Unknown]
  - Dyspnoea [Unknown]
  - Urticaria [Unknown]
  - Pruritus [Unknown]

NARRATIVE: CASE EVENT DATE: 20231101
